FAERS Safety Report 5659419-3 (Version None)
Quarter: 2008Q1

REPORT INFORMATION
  Report Type: 
  Country: None (occurrence: None)
  Receive Date: 20080311
  Receipt Date: 20080222
  Transmission Date: 20080703
  Serious: Yes (Other)
  Sender: FDA-Public Use
  Company Number: US-RANBAXY-2008RR-13227

PATIENT

DRUGS (2)
  1. FLUOXETINE [Suspect]
     Indication: DEPRESSION
     Dosage: 40 MG, QD
  2. FLEXERIL [Concomitant]
     Indication: INTERVERTEBRAL DISC PROTRUSION
     Dosage: 5 MG, UNK

REACTIONS (1)
  - B-CELL LYMPHOMA [None]
